FAERS Safety Report 7397046 (Version 2)
Quarter: 2014Q1

REPORT INFORMATION
  Report Type: Spontaneous
  Country: US (occurrence: US)
  Receive Date: 20100524
  Receipt Date: 20140121
  Transmission Date: 20141002
  Serious: No
  Sender: FDA-Public Use
  Company Number: US-JNJFOC-20100504429

PATIENT
  Age: 68 Year
  Sex: Male
  Weight: 83.92 kg

DRUGS (2)
  1. SANDOZ FENTANYL TRANSDERMAL SYSTEM [Suspect]
     Indication: PAIN
     Route: 062
     Dates: start: 201001, end: 201001
  2. NEURONTIN [Concomitant]
     Indication: PAIN
     Route: 048
     Dates: start: 2006

REACTIONS (4)
  - Drug ineffective [Recovered/Resolved]
  - Wrong technique in drug usage process [Recovered/Resolved]
  - Product quality issue [Unknown]
  - Device leakage [Unknown]
